FAERS Safety Report 24296594 (Version 2)
Quarter: 2024Q3

REPORT INFORMATION
  Report Type: Spontaneous
  Country: US (occurrence: US)
  Receive Date: 20240909
  Receipt Date: 20240909
  Transmission Date: 20241017
  Serious: Yes (Other)
  Sender: ROCHE
  Company Number: US-ROCHE-10000074094

PATIENT

DRUGS (3)
  1. XOLAIR [Suspect]
     Active Substance: OMALIZUMAB
     Indication: Product used for unknown indication
     Route: 065
  2. CROMOLYN SODIUM [Concomitant]
     Active Substance: CROMOLYN SODIUM
  3. KETOTIFEN [Concomitant]
     Active Substance: KETOTIFEN

REACTIONS (3)
  - Anaphylactic reaction [Unknown]
  - Mast cell activation syndrome [Unknown]
  - COVID-19 [Unknown]
